FAERS Safety Report 8493537 (Version 2)
Quarter: 2013Q3

REPORT INFORMATION
  Report Type: Report from Study
  Country: US (occurrence: US)
  Receive Date: 20120404
  Receipt Date: 20130930
  Transmission Date: 20140515
  Serious: Yes (Other)
  Sender: FDA-Public Use
  Company Number: US-ELI_LILLY_AND_COMPANY-US201108005331

PATIENT
  Age: 86 Year
  Sex: Male

DRUGS (3)
  1. TERIPARATIDE [Suspect]
     Indication: OSTEOPOROSIS
     Dosage: 20 UG, QD
  2. TERIPARATIDE [Suspect]
     Indication: SENILE OSTEOPOROSIS
     Dosage: 20 UG, QD
  3. TERIPARATIDE [Suspect]
     Dosage: 20 UG, QD

REACTIONS (8)
  - Macular degeneration [Unknown]
  - Retinal disorder [Unknown]
  - Visual impairment [Unknown]
  - Visual acuity reduced [Unknown]
  - Vitamin D decreased [Unknown]
  - Road traffic accident [Unknown]
  - Fall [Unknown]
  - Fall [Unknown]
